FAERS Safety Report 7377720-2 (Version None)
Quarter: 2011Q1

REPORT INFORMATION
  Report Type: 
  Country: None (occurrence: None)
  Receive Date: 20110328
  Receipt Date: 20101018
  Transmission Date: 20110831
  Serious: Yes (Hospitalization)
  Sender: FDA-Public Use
  Company Number: US-BAYER-201016126NA

PATIENT
  Sex: Female
  Weight: 55 kg

DRUGS (9)
  1. PERCOCET [Concomitant]
  2. NSAID'S [Concomitant]
     Indication: PRODUCT USED FOR UNKNOWN INDICATION
     Route: 065
  3. DICYCLOMINE [Concomitant]
  4. YAZ [Suspect]
     Indication: CONTRACEPTION
     Route: 048
     Dates: start: 20071201, end: 20080301
  5. ACCUTANE [Concomitant]
  6. DORYX [Concomitant]
     Indication: PRODUCT USED FOR UNKNOWN INDICATION
     Route: 065
  7. YAZ [Suspect]
     Indication: ACNE
  8. YASMIN [Suspect]
     Indication: CONTRACEPTION
  9. OXYCONTIN [Concomitant]

REACTIONS (1)
  - PULMONARY EMBOLISM [None]
